FAERS Safety Report 25312362 (Version 2)
Quarter: 2025Q3

REPORT INFORMATION
  Report Type: Spontaneous
  Country: EU (occurrence: EU)
  Receive Date: 20250514
  Receipt Date: 20250805
  Transmission Date: 20251021
  Serious: Yes (Other)
  Sender: CELLTRION
  Company Number: EU-CELLTRION INC.-2025IT014079

PATIENT

DRUGS (2)
  1. INFLIXIMAB [Suspect]
     Active Substance: INFLIXIMAB
     Indication: Colitis ulcerative
     Dates: start: 202303
  2. FILGOTINIB [Suspect]
     Active Substance: FILGOTINIB
     Indication: Colitis ulcerative
     Dates: start: 2023

REACTIONS (2)
  - Clear cell renal cell carcinoma [Unknown]
  - Therapeutic product effect decreased [Unknown]
